FAERS Safety Report 9795801 (Version 2)
Quarter: 2014Q1

REPORT INFORMATION
  Report Type: Spontaneous
  Country: GB (occurrence: GB)
  Receive Date: 20140103
  Receipt Date: 20140217
  Transmission Date: 20141002
  Serious: Yes (Hospitalization, Other)
  Sender: FDA-Public Use
  Company Number: PHFR2013GB007441

PATIENT
  Age: 55 Year
  Sex: Male

DRUGS (4)
  1. CLOZARIL [Suspect]
     Dosage: 600 MG, QD
     Route: 048
     Dates: start: 20030806
  2. CLOZARIL [Suspect]
     Dosage: 500 MG, QD
     Route: 048
  3. SERTRALINE [Concomitant]
     Dosage: 50 MG, UNK
     Route: 048
     Dates: start: 20130124
  4. METFORMIN [Concomitant]
     Dosage: UNK

REACTIONS (4)
  - Urinary tract infection [Unknown]
  - Convulsion [Recovered/Resolved]
  - Blood creatine phosphokinase increased [Unknown]
  - Schizophrenia [Not Recovered/Not Resolved]
